FAERS Safety Report 8619589-1 (Version None)
Quarter: 2012Q3

REPORT INFORMATION
  Report Type: 
  Country: None (occurrence: None)
  Receive Date: 20120824
  Receipt Date: 20120822
  Transmission Date: 20120928
  Serious: Yes (Other)
  Sender: FDA-Public Use
  Company Number: PHHY2012AR072869

PATIENT
  Sex: Female

DRUGS (4)
  1. LEVOTHYROXINE SODIUM [Concomitant]
     Dosage: UNK UKN, UNK
  2. ZOLEDRONOC ACID [Suspect]
     Indication: OSTEOPENIA
     Dosage: 5 MG, 1 AMPULE ANULLY
     Route: 042
     Dates: start: 20120720
  3. INDAPAMIDE [Concomitant]
     Dosage: UNK UKN, UNK
  4. DIURETICS [Concomitant]
     Dosage: UNK UKN, UNK

REACTIONS (11)
  - VISUAL IMPAIRMENT [None]
  - HOT FLUSH [None]
  - EAR DISCOMFORT [None]
  - FEELING ABNORMAL [None]
  - SYNCOPE [None]
  - DIZZINESS [None]
  - HEADACHE [None]
  - BLOOD PRESSURE DECREASED [None]
  - FEELING COLD [None]
  - NECK PAIN [None]
  - ASTHENIA [None]
